FAERS Safety Report 22367713 (Version 2)
Quarter: 2023Q2

REPORT INFORMATION
  Report Type: Spontaneous
  Country: US (occurrence: US)
  Receive Date: 20230525
  Receipt Date: 20230607
  Transmission Date: 20230722
  Serious: Yes (Other)
  Sender: FDA-Public Use
  Company Number: US-MYLANLABS-2023M1052176

PATIENT
  Age: 17 Year
  Sex: Female
  Weight: 65.8 kg

DRUGS (6)
  1. AMNESTEEM [Suspect]
     Active Substance: ISOTRETINOIN
     Indication: Acne cystic
     Dosage: 20 MILLIGRAM, QD (START DATE: 14-SEP-2022)
     Route: 048
     Dates: end: 20220621
  2. AMNESTEEM [Suspect]
     Active Substance: ISOTRETINOIN
     Dosage: 20 MILLIGRAM, QD
     Route: 048
     Dates: start: 20221122, end: 20230101
  3. AMNESTEEM [Suspect]
     Active Substance: ISOTRETINOIN
     Indication: Acne cystic
     Dosage: 40 MILLIGRAM, QD (START DATE: 14-SEP-2022)
     Route: 048
     Dates: end: 20221121
  4. AMNESTEEM [Suspect]
     Active Substance: ISOTRETINOIN
     Dosage: 40 MILLIGRAM, QD
     Route: 048
     Dates: start: 20221122, end: 20230101
  5. MYORISAN [Suspect]
     Active Substance: ISOTRETINOIN
     Indication: Acne cystic
     Dosage: 20 MILLIGRAM, QD
     Route: 048
     Dates: start: 20220419, end: 20220524
  6. MYORISAN [Suspect]
     Active Substance: ISOTRETINOIN
     Indication: Acne cystic
     Dosage: 40 MILLIGRAM, QD (START DATE: 25-MAY-2022)
     Route: 048
     Dates: end: 20220913

REACTIONS (2)
  - Mood altered [Recovering/Resolving]
  - Inappropriate schedule of product administration [Unknown]

NARRATIVE: CASE EVENT DATE: 20220419
